FAERS Safety Report 5623071-3 (Version None)
Quarter: 2008Q1

REPORT INFORMATION
  Report Type: 
  Country: None (occurrence: None)
  Receive Date: 20080212
  Receipt Date: 20080130
  Transmission Date: 20080703
  Serious: Yes (Other)
  Sender: FDA-Public Use
  Company Number: PHNR2008AU00540

PATIENT

DRUGS (1)
  1. TEGRETOL [Suspect]

REACTIONS (3)
  - ANAEMIA [None]
  - BLOOD DISORDER [None]
  - HIGH DENSITY LIPOPROTEIN INCREASED [None]
